FAERS Safety Report 8017193-X (Version None)
Quarter: 2012Q1

REPORT INFORMATION
  Report Type: 
  Country: None (occurrence: None)
  Receive Date: 20120102
  Receipt Date: 20111229
  Transmission Date: 20120608
  Serious: Yes (Other)
  Sender: FDA-Public Use
  Company Number: PHHY2011FR26405

PATIENT
  Sex: Male

DRUGS (9)
  1. MODOPAR [Suspect]
     Indication: PARKINSON'S DISEASE
     Dosage: 125 MG, UNK
     Route: 048
  2. REQUIP [Suspect]
     Dosage: 21 MG, DAILY
     Route: 048
  3. REQUIP [Suspect]
     Indication: PARKINSON'S DISEASE
     Dosage: 21 MG, UNK
     Route: 048
  4. STALEVO 100 [Suspect]
     Dosage: 750 MG, DAILY
     Route: 048
  5. REQUIP [Suspect]
     Dosage: 15 MG, DAILY
     Route: 048
  6. AMANTADINE HCL [Suspect]
     Dosage: 100 MG, DAILY
     Route: 048
  7. STALEVO 100 [Suspect]
     Indication: PARKINSON'S DISEASE
     Dosage: 600 MG, DAILY
     Route: 048
  8. METFORMIN HCL [Suspect]
     Indication: TYPE 2 DIABETES MELLITUS
     Dosage: UNK UKN, UNK
     Route: 048
  9. REQUIP [Suspect]
     Dosage: 5 MG, TID
     Route: 048

REACTIONS (4)
  - HYPOTONIA [None]
  - AKINESIA [None]
  - SUDDEN ONSET OF SLEEP [None]
  - HYPERSOMNIA [None]
